FAERS Safety Report 5048200-4 (Version None)
Quarter: 2006Q3

REPORT INFORMATION
  Report Type: 
  Country: None (occurrence: None)
  Receive Date: 20060711
  Receipt Date: 20060706
  Transmission Date: 20061208
  Serious: Yes (Hospitalization)
  Sender: FDA-Public Use
  Company Number: FR-ROCHE-454343

PATIENT
  Age: 42 Year
  Sex: Female
  Weight: 53 kg

DRUGS (7)
  1. MYCOPHENOLATE MOFETIL [Suspect]
     Route: 048
     Dates: start: 20050923
  2. TACROLIMUS [Suspect]
     Route: 048
     Dates: start: 20050923
  3. MOPRAL [Concomitant]
     Dates: start: 20050920
  4. SOLU-MEDROL [Concomitant]
     Dates: start: 20050920
  5. ACETAMINOPHEN [Concomitant]
     Dates: start: 20050920
  6. TARDYFERON [Concomitant]
     Dates: start: 20050923
  7. FLODIL [Concomitant]
     Dates: start: 20050925

REACTIONS (2)
  - MYOCARDIAL INFARCTION [None]
  - POST PROCEDURAL HAEMATOMA [None]
